FAERS Safety Report 12883413 (Version 2)
Quarter: 2016Q4

REPORT INFORMATION
  Report Type: Report from Study
  Country: None (occurrence: ES)
  Receive Date: 20161025
  Receipt Date: 20161110
  Transmission Date: 20170207
  Serious: Yes (Other)
  Sender: FDA-Public Use
  Company Number: ES-ABBVIE-16P-144-1763336-00

PATIENT
  Age: 76 Year
  Sex: Male

DRUGS (9)
  1. ATORVASTATIN [Concomitant]
     Active Substance: ATORVASTATIN
     Indication: CAROTID ARTERIOSCLEROSIS
     Dates: start: 20090305
  2. LORMETAZEPAM [Concomitant]
     Active Substance: LORMETAZEPAM
     Indication: ANXIETY
     Route: 048
     Dates: start: 20070808
  3. DUODOPA [Suspect]
     Active Substance: CARBIDOPA\LEVODOPA
     Indication: PARKINSON^S DISEASE
     Route: 050
     Dates: start: 20160315
  4. OMEPRAZOL [Concomitant]
     Active Substance: OMEPRAZOLE
     Indication: PROPHYLAXIS
     Dates: start: 20110301
  5. ALPRAZOLAM. [Concomitant]
     Active Substance: ALPRAZOLAM
     Indication: ANXIETY
     Route: 048
     Dates: start: 20070808, end: 20160321
  6. LORMETAZEPAM [Concomitant]
     Active Substance: LORMETAZEPAM
     Indication: INSOMNIA
  7. ROTIGOTINA [Concomitant]
     Active Substance: ROTIGOTINE
     Indication: PRODUCT USED FOR UNKNOWN INDICATION
     Dates: start: 20140904, end: 20160307
  8. ADIRO [Concomitant]
     Active Substance: ASPIRIN
     Indication: ANGIOPATHY
     Route: 048
     Dates: start: 20081001, end: 20160314
  9. RASAGILINA [Concomitant]
     Indication: PRODUCT USED FOR UNKNOWN INDICATION
     Dates: start: 20140319, end: 20160307

REACTIONS (4)
  - Cardiac failure [Unknown]
  - Atrial fibrillation [Unknown]
  - Tachycardia [Unknown]
  - Atrial flutter [Unknown]

NARRATIVE: CASE EVENT DATE: 20160318
